FAERS Safety Report 21614601 (Version 2)
Quarter: 2022Q4

REPORT INFORMATION
  Report Type: Spontaneous
  Country: PL (occurrence: PL)
  Receive Date: 20221118
  Receipt Date: 20221202
  Transmission Date: 20230113
  Serious: Yes (Other)
  Sender: FDA-Public Use
  Company Number: PL-002147023-NVSC2022PL258223

PATIENT
  Age: 22 Year
  Sex: Male

DRUGS (3)
  1. ETOPOSIDE [Suspect]
     Active Substance: ETOPOSIDE
     Indication: Intracranial germ cell tumour
     Dosage: 4 CHEMOTHERAPY CYCLES
     Route: 065
  2. CARBOPLATIN [Suspect]
     Active Substance: CARBOPLATIN
     Indication: Intracranial germ cell tumour
     Dosage: 4 CHEMOTHERAPY CYCLES
     Route: 065
  3. IFOSFAMIDE [Suspect]
     Active Substance: IFOSFAMIDE
     Indication: Intracranial germ cell tumour
     Dosage: 4 CHEMOTHERAPY CYCLES
     Route: 065

REACTIONS (2)
  - Anaemia [Unknown]
  - Product use in unapproved indication [Unknown]
